FAERS Safety Report 9472961 (Version 1)
Quarter: 2013Q3

REPORT INFORMATION
  Report Type: Spontaneous
  Country: US (occurrence: US)
  Receive Date: 20130823
  Receipt Date: 20130823
  Transmission Date: 20140515
  Serious: No
  Sender: FDA-Public Use
  Company Number: US-BRISTOL-MYERS SQUIBB COMPANY-17285339

PATIENT
  Age: 37 Year
  Sex: Male

DRUGS (1)
  1. SPRYCEL [Suspect]

REACTIONS (5)
  - Vomiting [Unknown]
  - Nausea [Unknown]
  - Gastroenteritis viral [Unknown]
  - Pyrexia [Unknown]
  - Drug dose omission [Unknown]
